FAERS Safety Report 4763898-3 (Version None)
Quarter: 2005Q3

REPORT INFORMATION
  Report Type: 
  Country: None (occurrence: None)
  Receive Date: 20050906
  Receipt Date: 20050822
  Transmission Date: 20060218
  Serious: Yes (Hospitalization)
  Sender: FDA-Public Use
  Company Number: US-2005-003484

PATIENT
  Age: 41 Year
  Sex: Female
  Weight: 110.7 kg

DRUGS (1)
  1. BETASERON [Suspect]
     Indication: RELAPSING-REMITTING MULTIPLE SCLEROSIS
     Dosage: 8 MIU, EVERY 2D, SUBCUTANEOUS
     Route: 058
     Dates: start: 20040214

REACTIONS (4)
  - CENTRAL NERVOUS SYSTEM LESION [None]
  - NEPHRECTOMY [None]
  - PAPILLARY THYROID CANCER [None]
  - RENAL CELL CARCINOMA STAGE I [None]
